FAERS Safety Report 6823794-4 (Version None)
Quarter: 2010Q3

REPORT INFORMATION
  Report Type: 
  Country: None (occurrence: None)
  Receive Date: 20100708
  Receipt Date: 20060909
  Transmission Date: 20110219
  Serious: No
  Sender: FDA-Public Use
  Company Number: US-PFIZER INC-2006110106

PATIENT
  Sex: Female
  Weight: 48.99 kg

DRUGS (23)
  1. VARENICLINE [Suspect]
     Indication: EX-TOBACCO USER
     Dates: start: 20060801, end: 20060801
  2. XOPENEX [Concomitant]
  3. ALBUTEROL [Concomitant]
  4. SPIRIVA [Concomitant]
  5. ADVAIR DISKUS 100/50 [Concomitant]
  6. NITROGLYCERIN [Concomitant]
  7. LYRICA [Concomitant]
  8. ACETYLSALICYLIC ACID [Concomitant]
  9. VYTORIN [Concomitant]
  10. CYMBALTA [Concomitant]
  11. REQUIP [Concomitant]
  12. LUNESTA [Concomitant]
  13. ESTRADIOL [Concomitant]
  14. AMITIZA [Concomitant]
  15. PREVACID [Concomitant]
  16. IBANDRONATE SODIUM [Concomitant]
  17. PROVIGIL [Concomitant]
  18. VITAMIN C [Concomitant]
  19. DETROL LA [Concomitant]
  20. BUMEX [Concomitant]
  21. MINITRAN [Concomitant]
  22. POTASSIUM CHLORIDE [Concomitant]
  23. NORVASC [Concomitant]

REACTIONS (3)
  - GLYCOSYLATED HAEMOGLOBIN [None]
  - HEART RATE INCREASED [None]
  - VOMITING [None]
